APPROVED DRUG PRODUCT: AMITRIPTYLINE HYDROCHLORIDE
Active Ingredient: AMITRIPTYLINE HYDROCHLORIDE
Strength: 100MG
Dosage Form/Route: TABLET;ORAL
Application: A085927 | Product #001
Applicant: HALSEY DRUG CO INC
Approved: May 20, 1983 | RLD: No | RS: No | Type: DISCN